FAERS Safety Report 5800764-6 (Version None)
Quarter: 2008Q3

REPORT INFORMATION
  Report Type: 
  Country: None (occurrence: None)
  Receive Date: 20080703
  Receipt Date: 20080626
  Transmission Date: 20090109
  Serious: Yes (Hospitalization, Other)
  Sender: FDA-Public Use
  Company Number: US-ABBOTT-08P-163-0459625-00

PATIENT
  Sex: Female

DRUGS (2)
  1. HUMIRA [Suspect]
     Indication: PSORIATIC ARTHROPATHY
     Route: 058
  2. CELECOXIB [Concomitant]
     Indication: PAIN
     Route: 048

REACTIONS (4)
  - ARTHROPATHY [None]
  - DRUG DOSE OMISSION [None]
  - FALL [None]
  - LIMB CRUSHING INJURY [None]
